FAERS Safety Report 8564476 (Version 3)
Quarter: 2014Q2

REPORT INFORMATION
  Report Type: Report from Study
  Country: US (occurrence: US)
  Receive Date: 20120516
  Receipt Date: 20140625
  Transmission Date: 20141212
  Serious: Yes (Hospitalization, Other)
  Sender: FDA-Public Use
  Company Number: US-ALEXION-A201101835

PATIENT
  Age: 23 Year
  Sex: Female
  Weight: 37 kg

DRUGS (23)
  1. SOLIRIS [Suspect]
     Indication: HAEMOLYTIC URAEMIC SYNDROME
     Dosage: 600 MG, QW
     Route: 042
     Dates: start: 20111012, end: 20111019
  2. SOLIRIS [Suspect]
     Dosage: 900 MG, Q2W
     Route: 042
     Dates: start: 20111026, end: 20111123
  3. SOLIRIS [Suspect]
     Dosage: 1200 MG, UNK
     Route: 042
     Dates: start: 20111207
  4. PRILOSEC [Concomitant]
     Dosage: 40 MG, QD
  5. SYNTHROID [Concomitant]
     Indication: HYPOTHYROIDISM
     Dosage: 75 UG, QD
  6. MIDODRINE [Concomitant]
     Indication: HYPOTENSION
     Dosage: 10 MG, TID
  7. CRESTOR [Concomitant]
     Indication: LIPIDS INCREASED
     Dosage: 10 MG, QD
  8. PROCRIT [Concomitant]
     Indication: ANAEMIA
     Dosage: 29000 IU, QW
  9. CELEXA [Concomitant]
     Dosage: 40 MG, QD
  10. SEVELAMER [Concomitant]
     Dosage: 800 MG, 2 WITH EACH MEAL
  11. CARDIZEM CD [Concomitant]
     Dosage: 180 MG, QD
  12. LOPRESSOR [Concomitant]
     Dosage: 100 MG, QD
  13. CLONIDINE [Concomitant]
     Dosage: 0.1 MG, PRN
  14. ATIVAN [Concomitant]
     Dosage: 1 MG, 2 BEFORE DIALYSIS
  15. KLONOPIN [Concomitant]
     Dosage: 0.5 MG, PRN
  16. SENSIPAR [Concomitant]
     Dosage: 60 MG, QD
  17. TRAZODONE [Concomitant]
     Dosage: 50 MG, UNK
  18. PROMETRIUM [Concomitant]
     Dosage: UNK, QD
  19. ADDERALL [Concomitant]
     Indication: ATTENTION DEFICIT/HYPERACTIVITY DISORDER
     Dosage: 7.5 MG, QD IN AM
  20. ADDERALL [Concomitant]
     Dosage: 3.75 MG, QD IN PM
  21. LAMICTAL [Concomitant]
     Dosage: 100 MG, QD
  22. HECTOROL [Concomitant]
     Dosage: 25 MG, QD
  23. FEMTRACE [Concomitant]
     Dosage: 1.8 MG, QD

REACTIONS (6)
  - Cardiomyopathy [Unknown]
  - Cardiac murmur functional [Unknown]
  - Staphylococcal infection [Recovering/Resolving]
  - Fatigue [Unknown]
  - Confusional state [Unknown]
  - Oedema [Unknown]
